FAERS Safety Report 9792022 (Version 1)
Quarter: 2013Q4

REPORT INFORMATION
  Report Type: Spontaneous
  Country: US (occurrence: None)
  Receive Date: 20131231
  Receipt Date: 20131231
  Transmission Date: 20140711
  Serious: Yes (Hospitalization)
  Sender: FDA-Public Use
  Company Number: US-ALKEM-000444

PATIENT
  Age: 70 Year
  Sex: Male

DRUGS (1)
  1. METFORMIN [Suspect]
     Indication: TYPE 2 DIABETES MELLITUS

REACTIONS (9)
  - Lactic acidosis [None]
  - Renal failure acute [None]
  - Chest pain [None]
  - Dyspnoea [None]
  - Rales [None]
  - Haemodialysis [None]
  - Metabolic acidosis [None]
  - Off label use [None]
  - Blood pressure systolic increased [None]
